FAERS Safety Report 23108642 (Version 2)
Quarter: 2024Q1

REPORT INFORMATION
  Report Type: Report from Study
  Country: ZA (occurrence: ZA)
  Receive Date: 20231026
  Receipt Date: 20240305
  Transmission Date: 20240410
  Serious: Yes (Other)
  Sender: FDA-Public Use
  Company Number: ZA-002147023-NVSC2023ZA164314

PATIENT
  Age: 69 Year
  Sex: Female

DRUGS (1)
  1. RIBOCICLIB [Suspect]
     Active Substance: RIBOCICLIB
     Indication: Breast cancer metastatic
     Dosage: 600 MG, QD
     Route: 048
     Dates: start: 20221206

REACTIONS (6)
  - Nasopharyngitis [Recovered/Resolved]
  - Sciatica [Unknown]
  - Vertebral lesion [Unknown]
  - Electrocardiogram QT prolonged [Unknown]
  - Aphonia [Recovered/Resolved]
  - Pain [Not Recovered/Not Resolved]
